FAERS Safety Report 6781955-7 (Version None)
Quarter: 2010Q2

REPORT INFORMATION
  Report Type: 
  Country: None (occurrence: None)
  Receive Date: 20100618
  Receipt Date: 20100618
  Transmission Date: 20101027
  Serious: Yes (Hospitalization)
  Sender: FDA-Public Use
  Company Number: None

PATIENT
  Age: 81 Year
  Sex: Male
  Weight: 70.45 kg

DRUGS (1)
  1. WARFARIN SODIUM [Suspect]
     Dosage: 5MG OTHER PO
     Route: 048
     Dates: start: 20100204

REACTIONS (1)
  - HAEMORRHAGE [None]
